FAERS Safety Report 16741225 (Version 1)
Quarter: 2019Q4

REPORT INFORMATION
  Report Type: Spontaneous
  Country: US (occurrence: US)
  Receive Date: 20190822
  Receipt Date: 20190822
  Transmission Date: 20200122
  Serious: Yes (Other)
  Sender: FDA-Public Use
  Company Number: None

PATIENT
  Age: 8 Year
  Sex: Male
  Weight: 27 kg

DRUGS (2)
  1. MULTIVITAMIN [Concomitant]
     Active Substance: VITAMINS
  2. HEMP EXTRACT [Suspect]
     Active Substance: HEMP
     Indication: EPILEPSY
     Dosage: ?          QUANTITY:200 .5 ML PER SERVING;?
     Route: 048
     Dates: start: 20190724, end: 20190809

REACTIONS (5)
  - Fall [None]
  - Loss of consciousness [None]
  - Abnormal behaviour [None]
  - Product quality issue [None]
  - Product measured potency issue [None]

NARRATIVE: CASE EVENT DATE: 20190724
